FAERS Safety Report 4362383-0 (Version None)
Quarter: 2004Q2

REPORT INFORMATION
  Report Type: 
  Country: None (occurrence: None)
  Receive Date: 20040518
  Receipt Date: 20040504
  Transmission Date: 20050107
  Serious: Yes (Death, Hospitalization)
  Sender: FDA-Public Use
  Company Number: RENA-11014

PATIENT
  Age: 9 Year
  Sex: Male

DRUGS (6)
  1. RENAGEL [Suspect]
     Indication: HYPERPHOSPHATAEMIA
     Dates: end: 20030301
  2. NIFEDIPINE [Concomitant]
  3. CALCITRIOL [Concomitant]
  4. CALCIUM CARBONATE [Concomitant]
  5. IRON [Concomitant]
  6. EPOGEN [Concomitant]

REACTIONS (5)
  - CARDIO-RESPIRATORY ARREST [None]
  - NEPHROTIC SYNDROME [None]
  - PULMONARY EMBOLISM [None]
  - RENAL TRANSPLANT [None]
  - SKIN FIBROSIS [None]
